FAERS Safety Report 9342041 (Version 2)
Quarter: 2013Q3

REPORT INFORMATION
  Report Type: Spontaneous
  Country: IT (occurrence: IT)
  Receive Date: 20130606
  Receipt Date: 20130801
  Transmission Date: 20140515
  Serious: Yes (Other)
  Sender: FDA-Public Use
  Company Number: 2013AP005682

PATIENT
  Age: 44 Year
  Sex: Male

DRUGS (1)
  1. LEVOFLOXACIN (LEVOFLOXACIN) [Suspect]
     Indication: SINUSITIS
     Route: 048
     Dates: start: 20130515, end: 20130515

REACTIONS (5)
  - Dysphonia [None]
  - Rash pruritic [None]
  - Erythema [None]
  - Rash [None]
  - Rash [None]
